FAERS Safety Report 5822686-7 (Version None)
Quarter: 2008Q3

REPORT INFORMATION
  Report Type: 
  Country: None (occurrence: None)
  Receive Date: 20080714
  Receipt Date: 20080109
  Transmission Date: 20090109
  Serious: Yes (Disabling)
  Sender: FDA-Public Use
  Company Number: 540321

PATIENT
  Age: 50 Year
  Sex: Female
  Weight: 96.6 kg

DRUGS (2)
  1. BONIVA [Suspect]
     Indication: OSTEOPOROSIS
     Dosage: 150 MG 1 PER MONTH ORAL
     Route: 048
     Dates: start: 20071225, end: 20080108
  2. BONIVA [Suspect]
     Indication: PROPHYLAXIS
     Dosage: 150 MG 1 PER MONTH ORAL
     Route: 048
     Dates: start: 20071225, end: 20080108

REACTIONS (4)
  - ASTHENIA [None]
  - BONE PAIN [None]
  - DIARRHOEA [None]
  - FATIGUE [None]
